FAERS Safety Report 5545237-3 (Version None)
Quarter: 2007Q4

REPORT INFORMATION
  Report Type: 
  Country: None (occurrence: None)
  Receive Date: 20071123
  Receipt Date: 20061030
  Transmission Date: 20080405
  Serious: Yes (Other)
  Sender: FDA-Public Use
  Company Number: US-JNJFOC-20061006966

PATIENT
  Age: 67 Year
  Sex: Male
  Weight: 102.0593 kg

DRUGS (3)
  1. LEVAQUIN [Suspect]
     Indication: URINARY TRACT INFECTION
     Dosage: 750 MG, 1 IN 1 DAY, ORAL
     Route: 048
     Dates: start: 20061012, end: 20061015
  2. ARICEPT [Concomitant]
  3. SELEXA (CITALOPRAM HYDROBROMIDE) TABLETS [Concomitant]

REACTIONS (2)
  - ERYTHEMA [None]
  - JAUNDICE [None]
